FAERS Safety Report 7992605-6 (Version None)
Quarter: 2011Q4

REPORT INFORMATION
  Report Type: 
  Country: None (occurrence: None)
  Receive Date: 20111219
  Receipt Date: 20111216
  Transmission Date: 20120403
  Serious: No
  Sender: FDA-Public Use
  Company Number: US-PFIZER INC-2011306826

PATIENT
  Sex: Male
  Weight: 82.993 kg

DRUGS (1)
  1. ALTACE [Suspect]
     Indication: EJECTION FRACTION ABNORMAL
     Dosage: 2.5 MG, 1X/DAY
     Route: 048
     Dates: start: 20110810, end: 20111206

REACTIONS (2)
  - UPPER RESPIRATORY TRACT CONGESTION [None]
  - NASAL CONGESTION [None]
